FAERS Safety Report 9563704 (Version 1)
Quarter: 2013Q1

REPORT INFORMATION
  Report Type: Spontaneous
  Country: US (occurrence: None)
  Receive Date: 20121227
  Receipt Date: 20121227
  Transmission Date: 20140127
  Serious: Yes (Other)
  Sender: FDA-Public Use
  Company Number: PHEH2012US002438

PATIENT
  Age: 74 Year
  Sex: Male

DRUGS (1)
  1. EXJADE [Suspect]
     Indication: IRON OVERLOAD
     Route: 048
     Dates: start: 20111001

REACTIONS (6)
  - Post procedural infection [None]
  - Joint injury [None]
  - Abdominal pain upper [None]
  - Arthralgia [None]
  - Ligament pain [None]
  - Joint swelling [None]
